FAERS Safety Report 7732669-8 (Version None)
Quarter: 2011Q3

REPORT INFORMATION
  Report Type: 
  Country: None (occurrence: None)
  Receive Date: 20110907
  Receipt Date: 20110825
  Transmission Date: 20111222
  Serious: Yes (Hospitalization, Other)
  Sender: FDA-Public Use
  Company Number: US-BIOGENIDEC-2011BI030858

PATIENT
  Age: 64 Year
  Sex: Female

DRUGS (23)
  1. AMANTIDINE [Concomitant]
     Indication: FATIGUE
     Route: 048
  2. SIMVASTATIN [Concomitant]
     Route: 048
  3. LEVOTHYROXINE SODIUM [Concomitant]
     Indication: HYPOTHYROIDISM
     Route: 048
  4. DIPHENHYDRAMINE HCL [Concomitant]
     Indication: PRURITUS
     Route: 048
  5. TYSABRI [Suspect]
     Route: 042
     Dates: start: 20100106, end: 20110706
  6. TYSABRI [Suspect]
     Route: 042
     Dates: start: 20010101
  7. CLEARLAX [Concomitant]
     Indication: CONSTIPATION
  8. NYSTATIN [Concomitant]
  9. NITROGLYCERIN [Concomitant]
  10. FERROUS SULFATE TAB [Concomitant]
     Indication: ANAEMIA
     Route: 048
  11. CITALOPRAM [Concomitant]
     Route: 048
  12. BACLOFEN [Concomitant]
     Indication: MUSCLE SPASTICITY
     Route: 048
  13. NORTRIPTYLINE HCL [Concomitant]
     Route: 048
  14. VITAMIN D [Concomitant]
     Route: 048
  15. SENNA [Concomitant]
     Indication: CONSTIPATION
  16. METFORMIN HCL [Concomitant]
     Indication: DIABETES MELLITUS
     Route: 048
  17. METOPROLOL [Concomitant]
     Indication: HYPERTENSION
     Route: 048
  18. LOSARTAN [Concomitant]
     Route: 048
  19. DOCUSATE SODIUM [Concomitant]
     Indication: CONSTIPATION
  20. ACETAMINOPHEN [Concomitant]
  21. TYSABRI [Suspect]
     Indication: MULTIPLE SCLEROSIS
     Route: 042
     Dates: start: 20080111, end: 20090612
  22. OXYBUTYNIN [Concomitant]
     Indication: URINARY INCONTINENCE
     Route: 048
  23. METHOCARBAMOL [Concomitant]
     Indication: MUSCLE SPASMS
     Route: 048

REACTIONS (2)
  - CONVULSION [None]
  - ACUTE MYOCARDIAL INFARCTION [None]
